FAERS Safety Report 9230426 (Version 2)
Quarter: 2013Q2

REPORT INFORMATION
  Report Type: Spontaneous
  Country: FI (occurrence: FI)
  Receive Date: 20130415
  Receipt Date: 20130423
  Transmission Date: 20140414
  Serious: Yes (Other)
  Sender: FDA-Public Use
  Company Number: FI-BAYER-2013-044086

PATIENT
  Sex: Female

DRUGS (1)
  1. BETAFERON [Suspect]
     Dosage: UNK
     Dates: start: 2002

REACTIONS (10)
  - Multiple sclerosis relapse [None]
  - Injection site atrophy [None]
  - Injection site erythema [None]
  - Injection site bruising [None]
  - Injection site nodule [None]
  - Injection site inflammation [None]
  - Injection site pain [None]
  - Mobility decreased [None]
  - Impaired healing [None]
  - Weight increased [None]
